FAERS Safety Report 5305430-1 (Version None)
Quarter: 2007Q2

REPORT INFORMATION
  Report Type: 
  Country: None (occurrence: None)
  Receive Date: 20070416
  Receipt Date: 20070403
  Transmission Date: 20071010
  Serious: Yes (Death, Other)
  Sender: FDA-Public Use
  Company Number: 2007314005

PATIENT
  Age: 3 Month
  Sex: Male

DRUGS (4)
  1. PSEUDOEPHEDRINE HCL [Suspect]
  2. ACETAMINOPHEN [Suspect]
  3. DEXTROMETHORPHAN HYDROBROMIDE [Suspect]
  4. DOXYLAMINE [Suspect]

REACTIONS (4)
  - ANOXIC ENCEPHALOPATHY [None]
  - DRUG LEVEL ABOVE THERAPEUTIC [None]
  - DRUG TOXICITY [None]
  - TIBIA FRACTURE [None]
